FAERS Safety Report 17708440 (Version 2)
Quarter: 2020Q3

REPORT INFORMATION
  Report Type: Spontaneous
  Country: HR (occurrence: HR)
  Receive Date: 20200426
  Receipt Date: 20200703
  Transmission Date: 20201102
  Serious: Yes (Death)
  Sender: FDA-Public Use
  Company Number: NVSC2020HR110007

PATIENT
  Age: 62 Year
  Sex: Female

DRUGS (1)
  1. PARACETAMOL [Suspect]
     Active Substance: ACETAMINOPHEN
     Indication: PRODUCT USED FOR UNKNOWN INDICATION
     Dosage: UNK, ()
     Route: 065

REACTIONS (9)
  - Pyrexia [Fatal]
  - Jaundice [Fatal]
  - Coagulopathy [Fatal]
  - Somnolence [Fatal]
  - Ammonia increased [Fatal]
  - Encephalopathy [Fatal]
  - Lactic acidosis [Fatal]
  - Acute hepatic failure [Fatal]
  - Hypoglycaemia [Fatal]

NARRATIVE: CASE EVENT DATE: 201912
